FAERS Safety Report 4487018-8 (Version None)
Quarter: 2004Q4

REPORT INFORMATION
  Report Type: 
  Country: None (occurrence: None)
  Receive Date: 20041022
  Receipt Date: 20041011
  Transmission Date: 20050328
  Serious: Yes (Hospitalization)
  Sender: FDA-Public Use
  Company Number: 2004236696DE

PATIENT
  Age: 54 Year
  Sex: Female
  Weight: 107 kg

DRUGS (3)
  1. CELEBREX [Suspect]
     Indication: SPONDYLITIS
     Dosage: 200 MG, BID, ORAL
     Route: 048
     Dates: start: 20020117, end: 20040924
  2. METHOTREXATE SODIUM [Concomitant]
  3. DOXEPIN HCL [Concomitant]

REACTIONS (6)
  - ANXIETY [None]
  - BLOOD CREATINE PHOSPHOKINASE INCREASED [None]
  - BLOOD PRESSURE ABNORMAL [None]
  - HYPERTENSION [None]
  - MYALGIA [None]
  - RESTLESSNESS [None]
